FAERS Safety Report 11648278 (Version 2)
Quarter: 2016Q2

REPORT INFORMATION
  Report Type: Spontaneous
  Country: US (occurrence: US)
  Receive Date: 20151021
  Receipt Date: 20160601
  Transmission Date: 20160815
  Serious: No
  Sender: FDA-Public Use
  Company Number: US-PFIZER INC-2015353200

PATIENT
  Age: 54 Year
  Sex: Female

DRUGS (2)
  1. CIPRO [Suspect]
     Active Substance: CIPROFLOXACIN HYDROCHLORIDE
     Indication: ABDOMINAL PAIN
     Dosage: 500 MG, 2X/DAY (ONCE EVERY TWELVE HOURS)
     Route: 048
     Dates: start: 20140115
  2. FLAGYL [Suspect]
     Active Substance: METRONIDAZOLE\METRONIDAZOLE HYDROCHLORIDE
     Indication: ABDOMINAL PAIN
     Dosage: 500 MG, ONCE EVERY EIGHT HOURS
     Route: 048
     Dates: start: 20140115

REACTIONS (1)
  - Nausea [Unknown]
